FAERS Safety Report 9301207 (Version 1)
Quarter: 2013Q2

REPORT INFORMATION
  Report Type: Spontaneous
  Country: US (occurrence: US)
  Receive Date: 20130521
  Receipt Date: 20130521
  Transmission Date: 20140414
  Serious: No
  Sender: FDA-Public Use
  Company Number: US-BRISTOL-MYERS SQUIBB COMPANY-17218074

PATIENT
  Age: 44 Year
  Sex: Male

DRUGS (9)
  1. BARACLUDE [Suspect]
     Indication: HEPATITIS B
     Route: 048
     Dates: end: 20120905
  2. IBUPROFEN [Concomitant]
     Route: 048
  3. PROPRANOLOL HCL [Concomitant]
     Route: 048
  4. HYDROCHLOROTHIAZIDE [Concomitant]
     Route: 048
  5. NEXIUM [Concomitant]
     Route: 048
  6. ZYRTEC [Concomitant]
     Route: 048
  7. PROVENTIL [Concomitant]
  8. SEROQUEL [Concomitant]
     Dosage: AT BEDTIME
     Route: 048
  9. CYMBALTA [Concomitant]
     Route: 048

REACTIONS (1)
  - Arthritis [Unknown]
